FAERS Safety Report 9411168 (Version 4)
Quarter: 2013Q4

REPORT INFORMATION
  Report Type: Spontaneous
  Country: JP (occurrence: JP)
  Receive Date: 20130721
  Receipt Date: 20131017
  Transmission Date: 20140711
  Serious: Yes (Hospitalization)
  Sender: FDA-Public Use
  Company Number: PHHY2013JP072849

PATIENT
  Sex: Male
  Weight: 55 kg

DRUGS (20)
  1. VOLTAREN [Suspect]
     Indication: PHANTOM PAIN
     Dosage: 50 MG, UNK
     Route: 054
     Dates: start: 20090508, end: 20120619
  2. LOBU [Suspect]
     Indication: PHANTOM PAIN
     Dosage: 60 MG, QD (ONCE IN THE MORNING)
     Route: 048
  3. LOBU [Suspect]
     Dosage: 60 MG, PRN
     Route: 048
  4. PREGABALIN [Concomitant]
     Indication: PHANTOM PAIN
     Dosage: 150 MG, BID
     Route: 048
  5. PREGABALIN [Concomitant]
     Dosage: 150 MG, QD
     Route: 048
  6. PLAVIX [Concomitant]
     Dosage: 75 MG
     Route: 048
  7. HARNAL [Concomitant]
     Dosage: 0.2 MG
     Route: 048
  8. MAGLAX [Concomitant]
     Dosage: 990 MG
     Route: 048
  9. KALIMATE [Concomitant]
     Dosage: 10.8 G
     Route: 048
  10. LIPITOR [Concomitant]
     Dosage: 2.5 MG
     Route: 048
  11. BUP-4 [Concomitant]
     Dosage: 10 MG
     Route: 048
  12. SERENACE [Concomitant]
     Dosage: 0.75 MG
     Route: 048
  13. JANUVIA [Concomitant]
     Dosage: 50 MG
     Route: 048
  14. OPALMON [Concomitant]
     Dosage: 15 UG
     Route: 048
  15. ARICEPT [Concomitant]
     Dosage: 5 MG
     Route: 048
  16. AVOLVE [Concomitant]
     Dosage: 0.5 MG
     Route: 048
  17. BLOPRESS [Concomitant]
     Dosage: 8 MG
     Route: 048
  18. GASTER D [Concomitant]
     Dosage: 20 MG
     Route: 048
  19. VOGLIBOSE [Concomitant]
     Dosage: 0.9 MG
     Route: 048
  20. PENTAZOCINE [Concomitant]
     Indication: PAIN
     Dosage: 15 MG
     Route: 030

REACTIONS (6)
  - Gastroduodenal ulcer [Recovered/Resolved]
  - Faeces discoloured [Unknown]
  - Gastric ulcer [Recovering/Resolving]
  - Haematemesis [Unknown]
  - Decreased appetite [Unknown]
  - Haemoglobin decreased [Recovering/Resolving]
